FAERS Safety Report 9741446 (Version 1)
Quarter: 2013Q4

REPORT INFORMATION
  Report Type: Report from Study
  Country: BR (occurrence: BR)
  Receive Date: 20131209
  Receipt Date: 20131209
  Transmission Date: 20140711
  Serious: Yes (Death, Hospitalization, Other)
  Sender: FDA-Public Use
  Company Number: PHHY2013BR143021

PATIENT
  Sex: Male
  Weight: 92 kg

DRUGS (1)
  1. DIOVAN AMLO FIX [Suspect]
     Indication: BLOOD PRESSURE ABNORMAL
     Dosage: 1 DF, AT NIGHT (320 MG VALS AND 10 MG AMLO)
     Route: 048

REACTIONS (1)
  - Pneumonia [Fatal]
